FAERS Safety Report 24799862 (Version 1)
Quarter: 2025Q1

REPORT INFORMATION
  Report Type: Other
  Country: RS (occurrence: RS)
  Receive Date: 20250102
  Receipt Date: 20250102
  Transmission Date: 20250409
  Serious: Yes (Life-Threatening, Hospitalization, Other)
  Sender: NUVO PHARMACEUTICALS
  Company Number: RS-Nuvo Pharmaceuticals Inc-2168199

PATIENT
  Age: 53 Year
  Sex: Male

DRUGS (2)
  1. DIAZEPAM [Suspect]
     Active Substance: DIAZEPAM
     Indication: Product used for unknown indication
  2. VALPROIC ACID [Suspect]
     Active Substance: VALPROIC ACID

REACTIONS (6)
  - Coma [Recovered/Resolved]
  - Intentional overdose [Unknown]
  - Toxicity to various agents [Recovered/Resolved]
  - Coma scale abnormal [Recovered/Resolved]
  - Depressed level of consciousness [Recovered/Resolved]
  - Pneumonia [Recovered/Resolved]
